FAERS Safety Report 18479629 (Version 1)
Quarter: 2020Q4

REPORT INFORMATION
  Report Type: Spontaneous
  Country: US (occurrence: US)
  Receive Date: 20201105
  Receipt Date: 20201105
  Transmission Date: 20210114
  Serious: Yes (Death)
  Sender: FDA-Public Use
  Company Number: None

PATIENT
  Age: 67 Year
  Sex: Female

DRUGS (12)
  1. ENOXAPARIN [Concomitant]
     Active Substance: ENOXAPARIN
  2. BIOTIN [Concomitant]
     Active Substance: BIOTIN
  3. TADALAFIL 20MG TAB 60/BO: 20MG [Suspect]
     Active Substance: TADALAFIL
     Indication: PULMONARY ARTERIAL HYPERTENSION
     Route: 048
     Dates: start: 201704, end: 202008
  4. PREDNISONE. [Concomitant]
     Active Substance: PREDNISONE
  5. URSODIOL. [Concomitant]
     Active Substance: URSODIOL
  6. MEGESTROL [Concomitant]
     Active Substance: MEGESTROL
  7. CALCIUM+VIT D [Concomitant]
  8. MELATONIN [Concomitant]
     Active Substance: MELATONIN
  9. LEVOTHYROXINE. [Concomitant]
     Active Substance: LEVOTHYROXINE
  10. TACROLIMUS. [Concomitant]
     Active Substance: TACROLIMUS
  11. SERTRALINE [Concomitant]
     Active Substance: SERTRALINE HYDROCHLORIDE
  12. ALENDRONATE [Concomitant]
     Active Substance: ALENDRONATE SODIUM

REACTIONS (1)
  - Adenocarcinoma [None]

NARRATIVE: CASE EVENT DATE: 20200801
